FAERS Safety Report 4643502-5 (Version None)
Quarter: 2005Q2

REPORT INFORMATION
  Report Type: 
  Country: None (occurrence: None)
  Receive Date: 20050323
  Receipt Date: 20041019
  Transmission Date: 20051028
  Serious: Yes (Other)
  Sender: FDA-Public Use
  Company Number: K200401648

PATIENT
  Age: 62 Year
  Sex: Female

DRUGS (4)
  1. ALTACE [Suspect]
     Dosage: ORAL
     Route: 048
  2. LASIX [Suspect]
  3. CARBOPLATIN [Suspect]
     Indication: CHEMOTHERAPY
  4. ALLOPURINOL [Suspect]

REACTIONS (4)
  - ACUTE PRERENAL FAILURE [None]
  - ANOREXIA [None]
  - DEHYDRATION [None]
  - RENAL FAILURE ACUTE [None]
